FAERS Safety Report 13522901 (Version 1)
Quarter: 2017Q2

REPORT INFORMATION
  Report Type: Spontaneous
  Country: US (occurrence: US)
  Receive Date: 20170508
  Receipt Date: 20170508
  Transmission Date: 20170830
  Serious: Yes (Hospitalization)
  Sender: FDA-Public Use
  Company Number: US-TEVA-766048USA

PATIENT
  Age: 24 Year
  Sex: Female

DRUGS (1)
  1. LOPERAMIDE [Suspect]
     Active Substance: LOPERAMIDE
     Dosage: 400 MILLIGRAM DAILY;
     Route: 048

REACTIONS (2)
  - Electrocardiogram abnormal [Recovered/Resolved]
  - Intentional product misuse [Unknown]
